FAERS Safety Report 9818049 (Version 1)
Quarter: 2013Q4

REPORT INFORMATION
  Report Type: Spontaneous
  Country: US (occurrence: None)
  Receive Date: 20131223
  Receipt Date: 20131223
  Transmission Date: 20140711
  Serious: No
  Sender: FDA-Public Use
  Company Number: 220091

PATIENT
  Age: 73 Year
  Sex: Female

DRUGS (4)
  1. PICATO (0.015%) [Suspect]
     Indication: ACTINIC KERATOSIS
     Route: 061
     Dates: start: 20130102, end: 20130104
  2. DIOVAN (VALSARTAN) [Concomitant]
  3. CRESTOR (ROSUVASTATIN) [Concomitant]
  4. WELLBUTRIN (BUPROPION) [Concomitant]

REACTIONS (1)
  - Application site swelling [None]
